FAERS Safety Report 20327449 (Version 1)
Quarter: 2022Q1

REPORT INFORMATION
  Report Type: Spontaneous
  Country: US (occurrence: None)
  Receive Date: 20220111
  Receipt Date: 20220111
  Transmission Date: 20220423
  Serious: Yes (Other)
  Sender: FDA-Public Use
  Company Number: None

PATIENT
  Sex: Male
  Weight: 84 kg

DRUGS (18)
  1. BARICITINIB [Suspect]
     Active Substance: BARICITINIB
     Indication: COVID-19
     Dosage: FREQUENCY : DAILY;?
     Dates: start: 20211225, end: 20220103
  2. ALBUTEROL\IPRATROPIUM [Concomitant]
     Active Substance: ALBUTEROL\IPRATROPIUM
  3. ASPIRIN [Concomitant]
     Active Substance: ASPIRIN
  4. ATORVASTATIN [Concomitant]
     Active Substance: ATORVASTATIN
  5. BUDESONIDE [Concomitant]
     Active Substance: BUDESONIDE
  6. CEFTRIAXONE [Concomitant]
     Active Substance: CEFTRIAXONE
  7. DEXAMETHASONE [Concomitant]
     Active Substance: DEXAMETHASONE
  8. docusate-senna [Concomitant]
  9. ENOXAPARIN [Concomitant]
     Active Substance: ENOXAPARIN
  10. FUROSEMIDE [Concomitant]
     Active Substance: FUROSEMIDE
  11. insulin lispro, NPH, regular [Concomitant]
  12. LANSOPRAZOLE [Concomitant]
     Active Substance: LANSOPRAZOLE
  13. GABAPENTIN [Concomitant]
     Active Substance: GABAPENTIN
  14. OXYCODONE [Concomitant]
     Active Substance: OXYCODONE
  15. POLYETHYLENE GLYCOL [Concomitant]
     Active Substance: POLYETHYLENE GLYCOL
  16. DEXMEDETOMIDINE [Concomitant]
     Active Substance: DEXMEDETOMIDINE
  17. FENTANYL [Concomitant]
     Active Substance: FENTANYL
  18. MIDAZOLAM [Concomitant]
     Active Substance: MIDAZOLAM

REACTIONS (1)
  - Creatinine renal clearance decreased [None]
